FAERS Safety Report 5365757-4 (Version None)
Quarter: 2007Q2

REPORT INFORMATION
  Report Type: 
  Country: None (occurrence: None)
  Receive Date: 20070621
  Receipt Date: 20070611
  Transmission Date: 20071010
  Serious: Yes (Hospitalization)
  Sender: FDA-Public Use
  Company Number: US-SANOFI-SYNTHELABO-A03200601385

PATIENT
  Sex: Female
  Weight: 60.8 kg

DRUGS (9)
  1. ASPIRIN [Concomitant]
     Route: 048
  2. COUMADIN [Concomitant]
     Dosage: 2 TO 3 MG/DAY
     Route: 048
  3. NORVASC [Concomitant]
     Route: 048
     Dates: end: 20050502
  4. NORVASC [Concomitant]
     Route: 048
     Dates: start: 20050707, end: 20061030
  5. PROTONIX [Concomitant]
     Route: 048
     Dates: start: 20050401
  6. AMBIEN CR [Suspect]
     Indication: INSOMNIA
     Route: 048
     Dates: start: 20051212, end: 20051230
  7. PROZAC [Concomitant]
     Route: 048
     Dates: start: 20040715, end: 20040725
  8. LISINOPRIL [Concomitant]
     Dosage: UNK
     Route: 048
     Dates: start: 20050502, end: 20050101
  9. LEXAPRO [Concomitant]
     Route: 048
     Dates: start: 20050707

REACTIONS (7)
  - AMNESIA [None]
  - IMPAIRED DRIVING ABILITY [None]
  - OEDEMA PERIPHERAL [None]
  - PAIN IN EXTREMITY [None]
  - ROAD TRAFFIC ACCIDENT [None]
  - SLEEP WALKING [None]
  - SYNCOPE [None]
